FAERS Safety Report 15753322 (Version 2)
Quarter: 2019Q1

REPORT INFORMATION
  Report Type: Report from Study
  Country: None (occurrence: CO)
  Receive Date: 20181222
  Receipt Date: 20190111
  Transmission Date: 20190417
  Serious: Yes (Hospitalization, Other)
  Sender: FDA-Public Use
  Company Number: CO-ABBVIE-18K-036-2574239-00

PATIENT
  Age: 88 Year
  Sex: Male
  Weight: 60 kg

DRUGS (4)
  1. ACETYLSALICYLIC ACID [Concomitant]
     Active Substance: ASPIRIN
     Indication: PRODUCT USED FOR UNKNOWN INDICATION
  2. HUMIRA [Suspect]
     Active Substance: ADALIMUMAB
     Indication: PSORIASIS
     Route: 058
     Dates: start: 20121120
  3. PREGABALINE [Concomitant]
     Active Substance: PREGABALIN
     Indication: PRODUCT USED FOR UNKNOWN INDICATION
  4. HUMIRA [Suspect]
     Active Substance: ADALIMUMAB
     Indication: PSORIASIS
     Dosage: HUMIRA AC
     Route: 058
     Dates: start: 2018, end: 20181114

REACTIONS (9)
  - Abdominal distension [Unknown]
  - Asphyxia [Unknown]
  - Intestinal congestion [Unknown]
  - Cardiac failure [Recovered/Resolved]
  - Headache [Recovering/Resolving]
  - Varicose vein [Unknown]
  - Polyp [Unknown]
  - Chronic gastritis [Unknown]
  - Colon adenoma [Unknown]

NARRATIVE: CASE EVENT DATE: 20181124
